FAERS Safety Report 8029343-X (Version None)
Quarter: 2012Q1

REPORT INFORMATION
  Report Type: 
  Country: None (occurrence: None)
  Receive Date: 20120106
  Receipt Date: 20111228
  Transmission Date: 20120608
  Serious: Yes (Death)
  Sender: FDA-Public Use
  Company Number: US-CELGENEUS-163-20785-11121167

PATIENT
  Sex: Male
  Weight: 82.628 kg

DRUGS (11)
  1. DEXAMETHASONE [Concomitant]
     Dosage: 4 MILLIGRAM
     Route: 065
  2. LANTUS [Concomitant]
     Dosage: 100 UNIT/ML
     Route: 065
  3. MULTI-VITAMINS [Concomitant]
     Route: 065
  4. THALOMID [Suspect]
     Indication: MULTIPLE MYELOMA
     Dosage: 150 MILLIGRAM
     Dates: start: 20100628, end: 20111110
  5. VITAMIN C [Concomitant]
     Dosage: 500 MILLIGRAM
     Route: 065
  6. ARTIFICIAL TEARS [Concomitant]
     Dosage: 1.4 PERCENT
     Route: 065
  7. FLOMAX [Concomitant]
     Dosage: .4 MILLIGRAM
     Route: 065
  8. VITAMIN D2 [Concomitant]
     Dosage: 500,000 UNITS
     Route: 065
  9. SODIUM BICARBONATE [Concomitant]
     Dosage: 650 MILLIGRAM
     Route: 065
  10. FOLIC ACID [Concomitant]
     Dosage: 400 MILLIGRAM
     Route: 065
  11. LISINOPRIL AND HYDROCHLOROTHIAZIDE [Concomitant]
     Dosage: 10-12.5MG
     Route: 065

REACTIONS (1)
  - RENAL FAILURE [None]
